FAERS Safety Report 23686125 (Version 1)
Quarter: 2024Q1

REPORT INFORMATION
  Report Type: Spontaneous
  Country: FR (occurrence: FR)
  Receive Date: 20240329
  Receipt Date: 20240329
  Transmission Date: 20240410
  Serious: Yes (Other)
  Sender: FDA-Public Use
  Company Number: FR-AFSSAPS-LL2024000464

PATIENT
  Sex: Female
  Weight: 3.02 kg

DRUGS (6)
  1. PREDNISONE [Suspect]
     Active Substance: PREDNISONE
     Indication: Neonatal respiratory distress syndrome
     Dosage: 10 MILLIGRAM, ONCE A DAY
     Route: 065
     Dates: start: 20230528
  2. ALBUTEROL SULFATE [Suspect]
     Active Substance: ALBUTEROL SULFATE
     Indication: Neonatal respiratory distress syndrome
     Dosage: UNK (ON DEMAND)
     Route: 065
     Dates: start: 20230528
  3. ATROVENT [Suspect]
     Active Substance: IPRATROPIUM BROMIDE
     Indication: Neonatal respiratory distress syndrome
     Dosage: UNK
     Route: 065
     Dates: start: 20230528
  4. BRICANYL [Suspect]
     Active Substance: TERBUTALINE SULFATE
     Indication: Neonatal respiratory distress syndrome
     Dosage: UNK
     Route: 065
     Dates: start: 20230528
  5. INNOVAIR [Suspect]
     Active Substance: BECLOMETHASONE DIPROPIONATE\FORMOTEROL
     Indication: Neonatal respiratory distress syndrome
     Dosage: 2 DOSAGE FORM, TWO TIMES A DAY (MORNING AND EVENING)
     Route: 065
     Dates: start: 20230528
  6. GLYCOPYRROLATE [Suspect]
     Active Substance: GLYCOPYRROLATE
     Indication: Neonatal respiratory distress syndrome
     Dosage: 1 DOSAGE FORM, ONCE A DAY
     Route: 065
     Dates: start: 20230528

REACTIONS (3)
  - Neonatal respiratory distress [Not Recovered/Not Resolved]
  - Bronchopulmonary dysplasia [Not Recovered/Not Resolved]
  - Maternal exposure during pregnancy [Not Recovered/Not Resolved]

NARRATIVE: CASE EVENT DATE: 20230528
